FAERS Safety Report 8155070-4 (Version None)
Quarter: 2012Q1

REPORT INFORMATION
  Report Type: 
  Country: None (occurrence: None)
  Receive Date: 20120221
  Receipt Date: 20120216
  Transmission Date: 20120608
  Serious: Yes (Other)
  Sender: FDA-Public Use
  Company Number: US-PFIZER INC-2012042637

PATIENT
  Sex: Male
  Weight: 95.24 kg

DRUGS (2)
  1. LYRICA [Suspect]
     Indication: FIBROMYALGIA
     Dosage: 100 MG, 2X/DAY
     Route: 048
     Dates: start: 20111101, end: 20120213
  2. HYDROCODONE [Concomitant]
     Dosage: UNK

REACTIONS (4)
  - GAIT DISTURBANCE [None]
  - PARAESTHESIA [None]
  - PAIN [None]
  - INSOMNIA [None]
